FAERS Safety Report 23049476 (Version 2)
Quarter: 2023Q4

REPORT INFORMATION
  Report Type: Spontaneous
  Country: AU (occurrence: AU)
  Receive Date: 20231010
  Receipt Date: 20231030
  Transmission Date: 20240110
  Serious: Yes (Death, Other)
  Sender: FDA-Public Use
  Company Number: AU-002147023-NVSC2023AU217709

PATIENT

DRUGS (1)
  1. FINGOLIMOD [Suspect]
     Active Substance: FINGOLIMOD
     Indication: Multiple sclerosis
     Dosage: UNK
     Route: 065
     Dates: start: 20141018, end: 20221012

REACTIONS (7)
  - Progressive multifocal leukoencephalopathy [Fatal]
  - Hemiparesis [Fatal]
  - Dysarthria [Fatal]
  - Clumsiness [Fatal]
  - Paresis [Fatal]
  - Dizziness [Fatal]
  - Multiple sclerosis [Unknown]
